FAERS Safety Report 6021309-4 (Version None)
Quarter: 2008Q4

REPORT INFORMATION
  Report Type: 
  Country: None (occurrence: None)
  Receive Date: 20081229
  Receipt Date: 20081215
  Transmission Date: 20090506
  Serious: Yes (Other)
  Sender: FDA-Public Use
  Company Number: FR-PFIZER INC-2008155339

PATIENT

DRUGS (2)
  1. LYRICA [Suspect]
     Indication: PAIN
     Dosage: 25 MG, 1X/DAY
  2. TRAMADOL HYDROCHLORIDE [Suspect]
     Indication: PAIN

REACTIONS (1)
  - TRANSIENT ISCHAEMIC ATTACK [None]
